FAERS Safety Report 9796202 (Version 1)
Quarter: 2014Q1

REPORT INFORMATION
  Report Type: Spontaneous
  Country: FR (occurrence: FR)
  Receive Date: 20140103
  Receipt Date: 20140103
  Transmission Date: 20141002
  Serious: Yes (Hospitalization)
  Sender: FDA-Public Use
  Company Number: FR-JNJFOC-20131217387

PATIENT
  Age: 71 Year
  Sex: Male

DRUGS (7)
  1. PREZISTA [Suspect]
     Indication: HIV TEST POSITIVE
     Route: 048
     Dates: end: 20131130
  2. INTELENCE [Suspect]
     Indication: HIV TEST POSITIVE
     Route: 065
  3. DOCETAXEL [Suspect]
     Indication: BLADDER CANCER
     Route: 042
     Dates: start: 20131011, end: 20131011
  4. CARBOPLATINE [Suspect]
     Indication: PRODUCT USED FOR UNKNOWN INDICATION
     Route: 042
     Dates: start: 20131011
  5. NORVIR [Suspect]
     Indication: HIV TEST POSITIVE
     Route: 048
     Dates: end: 20131130
  6. SOLU MEDROL [Suspect]
     Indication: BLADDER CANCER
     Route: 065
     Dates: start: 20131011
  7. ZOPHREN [Concomitant]
     Indication: BLADDER CANCER
     Route: 065
     Dates: start: 20131011

REACTIONS (4)
  - Thrombocytopenia [Recovered/Resolved]
  - Agranulocytosis [Recovered/Resolved]
  - Palmar-plantar erythrodysaesthesia syndrome [Recovered/Resolved]
  - Toxic skin eruption [Recovered/Resolved]
